FAERS Safety Report 20773261 (Version 3)
Quarter: 2022Q4

REPORT INFORMATION
  Report Type: Report from Study
  Country: US (occurrence: US)
  Receive Date: 20220502
  Receipt Date: 20221128
  Transmission Date: 20230113
  Serious: Yes (Other)
  Sender: FDA-Public Use
  Company Number: US-MYLANLABS-2022M1027241

PATIENT
  Sex: Female
  Weight: 83.01 kg

DRUGS (8)
  1. GLATIRAMER ACETATE [Suspect]
     Active Substance: GLATIRAMER ACETATE
     Indication: Multiple sclerosis
     Dosage: 40 MILLIGRAM, 3XW
     Route: 058
     Dates: start: 20220408
  2. PREDNISONE [Interacting]
     Active Substance: PREDNISONE
     Indication: Respiratory disorder
     Dosage: 1000 MILLIGRAM, QD
     Route: 065
  3. OCREVUS [Interacting]
     Active Substance: OCRELIZUMAB
     Indication: Product used for unknown indication
     Dosage: UNK
     Route: 065
  4. BACLOFEN [Concomitant]
     Active Substance: BACLOFEN
     Indication: Muscle spasms
     Dosage: 20 MILLIGRAM, QID
     Route: 048
     Dates: start: 201608
  5. BACLOFEN [Concomitant]
     Active Substance: BACLOFEN
     Indication: Tremor
  6. VITAMIN B12 [Concomitant]
     Active Substance: CYANOCOBALAMIN
     Indication: Vitamin B12 deficiency
     Dosage: 500 MICROGRAM, BID
     Route: 060
     Dates: start: 201511
  7. VITAMIN D2 [Concomitant]
     Active Substance: ERGOCALCIFEROL
     Indication: Vitamin D deficiency
     Dosage: 5000 INTERNATIONAL UNIT, BIWEEKLY
     Route: 048
     Dates: start: 201511
  8. VITAMIN C [Concomitant]
     Active Substance: ASCORBIC ACID
     Indication: Iron deficiency
     Dosage: 500 MILLIGRAM, QD
     Route: 048

REACTIONS (15)
  - Deafness [Unknown]
  - Blindness [Unknown]
  - Optic neuritis [Unknown]
  - Gait disturbance [Unknown]
  - Visual impairment [Unknown]
  - Injection site pain [Unknown]
  - Dysphagia [Unknown]
  - Injection site pruritus [Unknown]
  - Injection site reaction [Unknown]
  - Lung disorder [Unknown]
  - Weight decreased [Unknown]
  - Injection site discolouration [Recovered/Resolved]
  - Wound [Recovered/Resolved]
  - Wrong technique in product usage process [Unknown]
  - Drug interaction [Unknown]
